FAERS Safety Report 6600736-8 (Version None)
Quarter: 2010Q1

REPORT INFORMATION
  Report Type: 
  Country: None (occurrence: None)
  Receive Date: 20100223
  Receipt Date: 20100223
  Transmission Date: 20100710
  Serious: Yes (Other)
  Sender: FDA-Public Use
  Company Number: None

PATIENT
  Age: 27 Year
  Sex: Male
  Weight: 74.8435 kg

DRUGS (1)
  1. VALTREX [Suspect]
     Indication: HERPES SIMPLEX
     Dosage: 1 GRAM DAILY PO
     Route: 048
     Dates: start: 20060901, end: 20100219

REACTIONS (4)
  - DISEASE RECURRENCE [None]
  - MUSCLE INJURY [None]
  - PAIN [None]
  - TENDON INJURY [None]
